FAERS Safety Report 17960995 (Version 2)
Quarter: 2020Q3

REPORT INFORMATION
  Report Type: Spontaneous
  Country: US (occurrence: US)
  Receive Date: 20200630
  Receipt Date: 20200829
  Transmission Date: 20201103
  Serious: No
  Sender: FDA-Public Use
  Company Number: US-ASTRAZENECA-2020SE82159

PATIENT
  Sex: Female
  Weight: 59 kg

DRUGS (2)
  1. SYMBICORT [Suspect]
     Active Substance: BUDESONIDE\FORMOTEROL FUMARATE DIHYDRATE
     Indication: CHRONIC OBSTRUCTIVE PULMONARY DISEASE
     Dosage: 160/4.5 MCG TWO INHALATIONS TWICE A DAY
     Route: 055
  2. SYMBICORT [Suspect]
     Active Substance: BUDESONIDE\FORMOTEROL FUMARATE DIHYDRATE
     Indication: CHRONIC OBSTRUCTIVE PULMONARY DISEASE
     Dosage: USES THE SYMBICORT WHEN SHE COUGHS OR CHEST IS TIGHT AND THEN STOPS UNTIL THE NEXT EPISODE PROBLE...
     Route: 055

REACTIONS (6)
  - Body height decreased [Unknown]
  - Intentional device misuse [Not Recovered/Not Resolved]
  - Dyspnoea [Unknown]
  - Trigeminal neuralgia [Unknown]
  - Cough [Unknown]
  - Device issue [Unknown]
